FAERS Safety Report 16924824 (Version 2)
Quarter: 2019Q4

REPORT INFORMATION
  Report Type: Spontaneous
  Country: US (occurrence: US)
  Receive Date: 20191016
  Receipt Date: 20191023
  Transmission Date: 20200122
  Serious: No
  Sender: FDA-Public Use
  Company Number: US-PFIZER INC-2019443901

PATIENT
  Age: 37 Year
  Sex: Female
  Weight: 103.26 kg

DRUGS (1)
  1. SILDENAFIL CITRATE. [Suspect]
     Active Substance: SILDENAFIL CITRATE
     Dosage: UNK

REACTIONS (7)
  - Pain in extremity [Unknown]
  - Bone pain [Unknown]
  - Pain in jaw [Unknown]
  - Dyspnoea [Unknown]
  - Diarrhoea [Unknown]
  - Pruritus [Unknown]
  - Nausea [Unknown]
